FAERS Safety Report 11325501 (Version 1)
Quarter: 2015Q3

REPORT INFORMATION
  Report Type: Spontaneous
  Country: US (occurrence: US)
  Receive Date: 20150731
  Receipt Date: 20150731
  Transmission Date: 20151125
  Serious: No
  Sender: FDA-Public Use
  Company Number: US-ACCORD-031839

PATIENT
  Age: 79 Year
  Sex: Female

DRUGS (3)
  1. LOSARTAN. [Concomitant]
     Active Substance: LOSARTAN
     Indication: HYPERTENSION
  2. CALCIUM CARBONATE/CALCIUM LACTOGLUCONATE [Concomitant]
  3. CAPECITABINE. [Suspect]
     Active Substance: CAPECITABINE
     Indication: BREAST CANCER RECURRENT
     Dosage: STRENGTH: 500 MG (3 TABLETS BID FOR 1 WEEK ON, 1 WEEK OFF)?FREQUENCY: BID
     Route: 048
     Dates: start: 20150326

REACTIONS (4)
  - Eye pain [Recovered/Resolved]
  - Skin exfoliation [Recovered/Resolved]
  - Nausea [Recovered/Resolved]
  - Pain in extremity [Recovered/Resolved]

NARRATIVE: CASE EVENT DATE: 201505
